FAERS Safety Report 25492534 (Version 1)
Quarter: 2025Q2

REPORT INFORMATION
  Report Type: Spontaneous
  Country: TZ (occurrence: TZ)
  Receive Date: 20250630
  Receipt Date: 20250630
  Transmission Date: 20250717
  Serious: Yes (Death, Life-Threatening, Other)
  Sender: GLAND PHARMA LTD
  Company Number: TZ-GLANDPHARMA-TZ-2025GLNLIT01557

PATIENT
  Age: 37 Year
  Sex: Female

DRUGS (3)
  1. TRANEXAMIC ACID [Suspect]
     Active Substance: TRANEXAMIC ACID
     Indication: Product used for unknown indication
     Route: 037
  2. MEPERIDINE [Concomitant]
     Active Substance: MEPERIDINE
     Indication: General anaesthesia
     Route: 065
  3. SUCCINYLCHOLINE [Concomitant]
     Active Substance: SUCCINYLCHOLINE
     Indication: General anaesthesia
     Route: 065

REACTIONS (14)
  - Cardiac arrest [Fatal]
  - Acute kidney injury [Fatal]
  - Generalised tonic-clonic seizure [Recovered/Resolved with Sequelae]
  - Hypertension [Unknown]
  - Tachycardia [Unknown]
  - Muscle discomfort [Unknown]
  - Pruritus [Unknown]
  - Back pain [Unknown]
  - Chest discomfort [Unknown]
  - Agitation [Unknown]
  - Mental status changes [Unknown]
  - Wrong product administered [Unknown]
  - Incorrect route of product administration [Unknown]
  - Maternal exposure during delivery [Unknown]
